FAERS Safety Report 8054709-1 (Version None)
Quarter: 2012Q1

REPORT INFORMATION
  Report Type: 
  Country: None (occurrence: None)
  Receive Date: 20120119
  Receipt Date: 20120112
  Transmission Date: 20120608
  Serious: No
  Sender: FDA-Public Use
  Company Number: US-PFIZER INC-2012002836

PATIENT
  Sex: Female
  Weight: 106.12 kg

DRUGS (7)
  1. NEXIUM [Concomitant]
     Indication: HIATUS HERNIA
     Dosage: UNK
  2. TRAMADOL [Concomitant]
     Dosage: 50 MG, 3X/DAY
  3. LYRICA [Suspect]
     Indication: PAIN
     Dosage: 100 MG, 3X/DAY
     Route: 048
  4. POTASSIUM [Concomitant]
     Dosage: UNK
  5. DIOVAN HCT [Concomitant]
     Dosage: 160/25 MG, UNK
  6. RANITIDINE [Concomitant]
     Dosage: 150 MG, UNK
  7. LYRICA [Suspect]
     Indication: BURNING SENSATION

REACTIONS (4)
  - PAIN [None]
  - MUSCULOSKELETAL STIFFNESS [None]
  - MUSCLE SPASMS [None]
  - HEADACHE [None]
